FAERS Safety Report 6156822-2 (Version None)
Quarter: 2009Q2

REPORT INFORMATION
  Report Type: 
  Country: None (occurrence: None)
  Receive Date: 20090413
  Receipt Date: 20081216
  Transmission Date: 20091009
  Serious: No
  Sender: FDA-Public Use
  Company Number: 2008BM000251

PATIENT
  Age: 7 Year
  Sex: Male
  Weight: 31 kg

DRUGS (1)
  1. KUVAN [Suspect]
     Indication: PHENYLKETONURIA
     Dosage: 10 MG/KG;QD;PO
     Route: 048
     Dates: start: 20081212

REACTIONS (6)
  - ANGER [None]
  - EMOTIONAL DISORDER [None]
  - HEADACHE [None]
  - MUSCLE SPASMS [None]
  - RHINORRHOEA [None]
  - SNEEZING [None]
